FAERS Safety Report 19224941 (Version 1)
Quarter: 2021Q2

REPORT INFORMATION
  Report Type: Spontaneous
  Country: US (occurrence: US)
  Receive Date: 20210505
  Receipt Date: 20210505
  Transmission Date: 20210717
  Serious: No
  Sender: FDA-Public Use
  Company Number: US-ROCHE-2687645

PATIENT
  Age: 86 Year
  Sex: Male

DRUGS (1)
  1. ESBRIET [Suspect]
     Active Substance: PIRFENIDONE
     Indication: IDIOPATHIC PULMONARY FIBROSIS
     Route: 048
     Dates: start: 202007

REACTIONS (5)
  - Dyspnoea [Unknown]
  - Gastric disorder [Unknown]
  - Nausea [Unknown]
  - Stomach mass [Unknown]
  - Fatigue [Unknown]

NARRATIVE: CASE EVENT DATE: 202008
